FAERS Safety Report 19398973 (Version 1)
Quarter: 2021Q2

REPORT INFORMATION
  Report Type: Spontaneous
  Country: US (occurrence: US)
  Receive Date: 20210610
  Receipt Date: 20210610
  Transmission Date: 20210717
  Serious: No
  Sender: FDA-Public Use
  Company Number: None

PATIENT
  Age: 32 Year
  Sex: Female
  Weight: 58.5 kg

DRUGS (2)
  1. TEPEZZA [Suspect]
     Active Substance: TEPROTUMUMAB-TRBW
     Indication: HYPERTHYROIDISM
     Dosage: ?          OTHER FREQUENCY:ONCE TIME;?
     Route: 042
     Dates: start: 20210607
  2. TEPEZZA [Concomitant]
     Active Substance: TEPROTUMUMAB-TRBW
     Dates: start: 20210607

REACTIONS (2)
  - Blood urine present [None]
  - Vaginal haemorrhage [None]

NARRATIVE: CASE EVENT DATE: 20210607
